FAERS Safety Report 11275999 (Version 1)
Quarter: 2015Q3

REPORT INFORMATION
  Report Type: Spontaneous
  Country: TR (occurrence: TR)
  Receive Date: 20150716
  Receipt Date: 20150716
  Transmission Date: 20151125
  Serious: Yes (Other)
  Sender: FDA-Public Use
  Company Number: TR-ELI_LILLY_AND_COMPANY-TR201507001674

PATIENT
  Age: 17 Year
  Sex: Female

DRUGS (2)
  1. PROZAC [Suspect]
     Active Substance: FLUOXETINE HYDROCHLORIDE
     Dosage: 2 DF, QD
     Route: 065
  2. PROZAC [Suspect]
     Active Substance: FLUOXETINE HYDROCHLORIDE
     Indication: MENTAL DISORDER
     Dosage: 1 DF, QD
     Route: 065

REACTIONS (15)
  - Headache [Unknown]
  - Weight decreased [Unknown]
  - Depersonalisation [Unknown]
  - Hunger [Unknown]
  - Nausea [Unknown]
  - Jaundice [Unknown]
  - Insomnia [Unknown]
  - Dizziness [Unknown]
  - Seizure [Unknown]
  - Psychiatric symptom [Unknown]
  - Amnesia [Unknown]
  - Fatigue [Unknown]
  - Yawning [Unknown]
  - Gastric disorder [Unknown]
  - Diarrhoea [Unknown]

NARRATIVE: CASE EVENT DATE: 20150630
